FAERS Safety Report 7425713-9 (Version None)
Quarter: 2011Q2

REPORT INFORMATION
  Report Type: 
  Country: None (occurrence: None)
  Receive Date: 20110420
  Receipt Date: 20110414
  Transmission Date: 20111010
  Serious: Yes (Other)
  Sender: FDA-Public Use
  Company Number: US-B.I. PHARMACEUTICALS,INC./RIDGEFIELD-2011-BP-02234PF

PATIENT
  Sex: Male

DRUGS (2)
  1. CHANTIX [Suspect]
  2. SPIRIVA [Suspect]
     Route: 065

REACTIONS (4)
  - INTERVERTEBRAL DISC DEGENERATION [None]
  - LUNG HYPERINFLATION [None]
  - CHRONIC OBSTRUCTIVE PULMONARY DISEASE [None]
  - LUNG INFILTRATION [None]
